FAERS Safety Report 5743311-X (Version None)
Quarter: 2008Q2

REPORT INFORMATION
  Report Type: 
  Country: None (occurrence: None)
  Receive Date: 20080519
  Receipt Date: 20080508
  Transmission Date: 20081010
  Serious: Yes (Other)
  Sender: FDA-Public Use
  Company Number: JP-PFIZER INC-2008040135

PATIENT
  Age: 70 Year
  Sex: Male

DRUGS (2)
  1. ALDACTONE [Suspect]
     Route: 048
  2. LASIX [Suspect]

REACTIONS (1)
  - POLYURIA [None]
